FAERS Safety Report 7906913-8 (Version None)
Quarter: 2011Q4

REPORT INFORMATION
  Report Type: 
  Country: None (occurrence: None)
  Receive Date: 20111110
  Receipt Date: 20111108
  Transmission Date: 20120403
  Serious: Yes (Hospitalization)
  Sender: FDA-Public Use
  Company Number: FR-SANOFI-AVENTIS-2011SA013564

PATIENT
  Age: 73 Year
  Sex: Male

DRUGS (4)
  1. PREVISCAN [Concomitant]
     Route: 048
  2. MULTAQ [Suspect]
     Route: 048
     Dates: start: 20101203
  3. LASIX [Concomitant]
     Route: 065
  4. HYPERIUM [Concomitant]
     Route: 065

REACTIONS (2)
  - BICYTOPENIA [None]
  - HEPATIC CIRRHOSIS [None]
